FAERS Safety Report 11654526 (Version 1)
Quarter: 2015Q4

REPORT INFORMATION
  Report Type: Spontaneous
  Country: US (occurrence: US)
  Receive Date: 20151023
  Receipt Date: 20151023
  Transmission Date: 20160304
  Serious: Yes (Hospitalization, Other)
  Sender: FDA-Public Use
  Company Number: US-009507513-1510USA010127

PATIENT
  Age: 48 Year
  Sex: Female

DRUGS (4)
  1. XANAX [Concomitant]
     Active Substance: ALPRAZOLAM
     Dosage: 0.5 MG, EACH
  2. NUVARING [Suspect]
     Active Substance: ETHINYL ESTRADIOL\ETONOGESTREL
     Indication: CONTRACEPTION
     Dosage: 1, RING-3WEEKS IN WITH 1 RING FREE WEEK
     Route: 067
  3. SOTALOL. [Concomitant]
     Active Substance: SOTALOL
     Dosage: 120 MG, VID
  4. IBUPROFEN. [Concomitant]
     Active Substance: IBUPROFEN
     Dosage: 600 MG, AS NEEDED

REACTIONS (1)
  - Cerebrovascular accident [Recovering/Resolving]
